FAERS Safety Report 9537697 (Version 2)
Quarter: 2013Q3

REPORT INFORMATION
  Report Type: Spontaneous
  Country: US (occurrence: US)
  Receive Date: 20130919
  Receipt Date: 20130919
  Transmission Date: 20140515
  Serious: Yes (Other)
  Sender: FDA-Public Use
  Company Number: US-CUBIST PHARMACEUTICALS, INC.-2013CBST000804

PATIENT
  Sex: 0

DRUGS (2)
  1. CUBICIN [Suspect]
     Indication: EXTRADURAL ABSCESS
     Dosage: 10 ML, QD
     Route: 042
     Dates: end: 20130802
  2. CUBICIN [Suspect]
     Indication: OFF LABEL USE

REACTIONS (1)
  - Myocardial infarction [Recovered/Resolved]
